FAERS Safety Report 5281500-1 (Version None)
Quarter: 2007Q1

REPORT INFORMATION
  Report Type: 
  Country: None (occurrence: None)
  Receive Date: 20070323
  Receipt Date: 20070323
  Transmission Date: 20070707
  Serious: Yes (Hospitalization)
  Sender: FDA-Public Use
  Company Number: None

PATIENT
  Sex: Female
  Weight: 59.2 kg

DRUGS (2)
  1. CARBOPLATIN [Suspect]
     Dosage: 602 MG
     Dates: start: 20060511
  2. ALIMTA [Suspect]
     Dosage: 785 MG

REACTIONS (3)
  - FEBRILE NEUTROPENIA [None]
  - NAUSEA [None]
  - VOMITING [None]
